FAERS Safety Report 25443728 (Version 1)
Quarter: 2025Q2

REPORT INFORMATION
  Report Type: Spontaneous
  Country: US (occurrence: US)
  Receive Date: 20250617
  Receipt Date: 20250617
  Transmission Date: 20250717
  Serious: No
  Sender: GLENMARK
  Company Number: US-GLENMARK PHARMACEUTICALS-2024GMK095839

PATIENT

DRUGS (1)
  1. RYALTRIS [Suspect]
     Active Substance: MOMETASONE FUROATE MONOHYDRATE\OLOPATADINE HYDROCHLORIDE
     Indication: Rhinitis allergic
     Dosage: 1 DOSAGE FORM, BID, INSTILL 1 SPRAY INTO EACH NOSTRIL TWICE A DAY
     Route: 045
     Dates: start: 20240904, end: 20241120

REACTIONS (4)
  - Condition aggravated [Unknown]
  - Rhinitis allergic [Unknown]
  - Drug ineffective [Unknown]
  - Product use issue [Unknown]
